FAERS Safety Report 8148672-2 (Version None)
Quarter: 2012Q1

REPORT INFORMATION
  Report Type: 
  Country: None (occurrence: None)
  Receive Date: 20120218
  Receipt Date: 20110628
  Transmission Date: 20120608
  Serious: No
  Sender: FDA-Public Use
  Company Number: US-ALLERGAN-1108767US

PATIENT
  Sex: Female

DRUGS (1)
  1. BOTOX COSMETIC [Suspect]
     Indication: SKIN WRINKLING
     Dosage: 15 UNITS, SINGLE
     Route: 030
     Dates: start: 20110628, end: 20110628

REACTIONS (6)
  - INJECTION SITE SWELLING [None]
  - FACIAL NERVE DISORDER [None]
  - HYPOAESTHESIA [None]
  - DYSPHAGIA [None]
  - INJECTION SITE HAEMATOMA [None]
  - ANXIETY [None]
